FAERS Safety Report 18212634 (Version 3)
Quarter: 2020Q3

REPORT INFORMATION
  Report Type: Other
  Country: US (occurrence: US)
  Receive Date: 20200831
  Receipt Date: 20200915
  Transmission Date: 20201103
  Serious: Yes (Hospitalization, Other)
  Sender: FDA-Public Use
  Company Number: US-ROCHE-2666071

PATIENT
  Age: 62 Year
  Sex: Female
  Weight: 81.72 kg

DRUGS (5)
  1. GABAPENTIN. [Concomitant]
     Active Substance: GABAPENTIN
     Indication: NEURALGIA
     Dosage: AT NIGHT??ONGOING: YES
     Dates: start: 2017
  2. CLONAZEPAM. [Concomitant]
     Active Substance: CLONAZEPAM
     Dosage: AT NIGHT, ONGOING: YES
     Dates: start: 2000
  3. MORPHINE [Concomitant]
     Active Substance: MORPHINE
  4. OCREVUS [Suspect]
     Active Substance: OCRELIZUMAB
     Dosage: DATE OF TREATMENT: 06/NOV/2019,
     Route: 042
  5. OCREVUS [Suspect]
     Active Substance: OCRELIZUMAB
     Indication: PROGRESSIVE MULTIPLE SCLEROSIS
     Dosage: 6 HOURS
     Route: 065
     Dates: start: 20191022

REACTIONS (8)
  - Intestinal obstruction [Recovering/Resolving]
  - Multiple sclerosis relapse [Recovering/Resolving]
  - Constipation [Recovering/Resolving]
  - Hypertension [Unknown]
  - Impaired healing [Not Recovered/Not Resolved]
  - Bladder disorder [Unknown]
  - Asthenia [Unknown]
  - Cystitis [Recovering/Resolving]

NARRATIVE: CASE EVENT DATE: 201911
